FAERS Safety Report 5323466-1 (Version None)
Quarter: 2007Q2

REPORT INFORMATION
  Report Type: 
  Country: None (occurrence: None)
  Receive Date: 20070514
  Receipt Date: 20070509
  Transmission Date: 20071010
  Serious: Yes (Death, Hospitalization)
  Sender: FDA-Public Use
  Company Number: PHFR2006GB03323

PATIENT
  Age: 37 Year
  Sex: Female
  Weight: 96 kg

DRUGS (2)
  1. NEORAL [Suspect]
     Indication: ECZEMA
     Dosage: 150MG / DAY
     Route: 048
     Dates: start: 20050705
  2. AZATHIOPRINE [Concomitant]
     Indication: ECZEMA
     Dosage: 150MG / DAY
     Route: 048
     Dates: start: 20050101, end: 20060101

REACTIONS (2)
  - LOWER RESPIRATORY TRACT INFECTION [None]
  - PNEUMONITIS [None]
